FAERS Safety Report 24960956 (Version 1)
Quarter: 2025Q1

REPORT INFORMATION
  Report Type: Spontaneous
  Country: FR (occurrence: FR)
  Receive Date: 20250212
  Receipt Date: 20250212
  Transmission Date: 20250409
  Serious: Yes (Death, Hospitalization)
  Sender: PURDUE
  Company Number: FR-PURDUE-USA-2025-0315457

PATIENT
  Age: 85 Year
  Sex: Male

DRUGS (4)
  1. OXYCODONE HYDROCHLORIDE [Suspect]
     Active Substance: OXYCODONE HYDROCHLORIDE
     Indication: Back pain
     Dosage: 5 MILLIGRAM, DAILY
     Route: 048
     Dates: start: 20240816, end: 20240823
  2. OXYCODONE [Suspect]
     Active Substance: OXYCODONE
     Indication: Back pain
     Dosage: 1 DOSAGE FORM, DAILY
     Route: 048
     Dates: start: 20240822, end: 20240823
  3. MORPHINE SULFATE [Suspect]
     Active Substance: MORPHINE SULFATE
     Indication: Back pain
     Dosage: 1 DOSAGE FORM, DAILY
     Route: 048
     Dates: start: 20240825, end: 20240826
  4. MORPHINE HYDROCHLORIDE [Suspect]
     Active Substance: MORPHINE HYDROCHLORIDE
     Indication: Back pain
     Route: 042
     Dates: start: 20240827

REACTIONS (3)
  - Constipation [Fatal]
  - Faecal vomiting [Fatal]
  - Gastrointestinal obstruction [Fatal]

NARRATIVE: CASE EVENT DATE: 20240823
